FAERS Safety Report 7173931-X (Version None)
Quarter: 2010Q4

REPORT INFORMATION
  Report Type: 
  Country: None (occurrence: None)
  Receive Date: 20101219
  Receipt Date: 20100312
  Transmission Date: 20110411
  Serious: No
  Sender: FDA-Public Use
  Company Number: US-AMGEN-KDL399124

PATIENT

DRUGS (8)
  1. ENBREL [Suspect]
     Indication: PRODUCT USED FOR UNKNOWN INDICATION
     Dosage: 25 MG, QWK
     Route: 058
  2. METHOTREXATE [Concomitant]
  3. PANTOPRAZOLE [Concomitant]
     Dosage: 20 MG, UNK
  4. UNSPECIFIED MEDICATION [Concomitant]
     Dosage: UNK UNK, UNK
  5. MELOXICAM [Concomitant]
     Dosage: 15 MG, UNK
  6. MORPHINE SULFATE [Concomitant]
     Dosage: 100 MG, UNK
  7. TYLENOL SINUS MEDICATION [Concomitant]
     Dosage: UNK UNK, UNK
  8. ACTONEL [Concomitant]
     Dosage: UNK UNK, UNK

REACTIONS (4)
  - INJECTION SITE ERYTHEMA [None]
  - INJECTION SITE REACTION [None]
  - INJECTION SITE SWELLING [None]
  - WEIGHT INCREASED [None]
